FAERS Safety Report 6924937-4 (Version None)
Quarter: 2010Q3

REPORT INFORMATION
  Report Type: 
  Country: None (occurrence: None)
  Receive Date: 20100816
  Receipt Date: 20100811
  Transmission Date: 20110219
  Serious: Yes (Other)
  Sender: FDA-Public Use
  Company Number: JP-PFIZER INC-2010100889

PATIENT
  Age: 82 Year
  Sex: Female

DRUGS (8)
  1. CELECOX [Suspect]
     Dosage: 100 MG, DAILY
     Route: 048
     Dates: start: 20100401
  2. FESIN [Suspect]
     Dosage: 40 MG, DAILY
     Route: 042
     Dates: start: 20100618, end: 20100620
  3. FESIN [Suspect]
     Dosage: 40 MG, DAILY
     Route: 042
     Dates: start: 20100629, end: 20100630
  4. ASPIRIN [Suspect]
     Dosage: 100 MG, DAILY
     Route: 048
  5. LASIX [Concomitant]
     Dosage: UNK
     Route: 048
  6. TAKEPRON [Concomitant]
     Dosage: UNK
  7. BUP-4 [Concomitant]
     Dosage: UNK
  8. GLUCOSE [Concomitant]
     Dosage: UNK
     Dates: start: 20100618, end: 20100716

REACTIONS (2)
  - PETECHIAE [None]
  - SURGERY [None]
